FAERS Safety Report 6938184-3 (Version None)
Quarter: 2010Q3

REPORT INFORMATION
  Report Type: 
  Country: None (occurrence: None)
  Receive Date: 20100817
  Receipt Date: 20100802
  Transmission Date: 20110219
  Serious: Yes (Hospitalization)
  Sender: FDA-Public Use
  Company Number: 1000015672

PATIENT
  Age: 92 Year
  Sex: Male

DRUGS (7)
  1. ESCITALOPRAM OXALATE [Suspect]
     Dosage: 10 MG (10 MG,  1 IN 1 D), ORAL
     Route: 048
     Dates: start: 20090601
  2. AERIUS [Suspect]
     Dosage: ORAL
     Route: 048
     Dates: start: 20071001
  3. XATRAL (2.5 MILLIGRAM, TABLETS) [Suspect]
     Dosage: ORAL
     Route: 048
     Dates: start: 20080301
  4. KARDEGIC (75 MILLIGRAM, POWDER) [Suspect]
     Dosage: ORAL
     Route: 048
     Dates: start: 20080501
  5. SPIRONOLACTONE (50 MILLIGRAM, TABLETS) [Suspect]
     Dates: start: 20090101
  6. ATARAX [Suspect]
     Dosage: ORAL
     Route: 048
     Dates: start: 20090201
  7. PANTOPRAZOLE [Suspect]
     Dosage: 20 MG (20 MG, 1 IN 1 D), ORAL
     Route: 048
     Dates: start: 20100501

REACTIONS (5)
  - CONDITION AGGRAVATED [None]
  - LICHENOID KERATOSIS [None]
  - PRURIGO [None]
  - TOXIC SKIN ERUPTION [None]
  - TREATMENT FAILURE [None]
